FAERS Safety Report 4586842-0 (Version None)
Quarter: 2005Q1

REPORT INFORMATION
  Report Type: 
  Country: None (occurrence: None)
  Receive Date: 20050218
  Receipt Date: 20050210
  Transmission Date: 20050727
  Serious: Yes (Death)
  Sender: FDA-Public Use
  Company Number: US-NOVOPROD-242218

PATIENT
  Age: 19 Year
  Sex: Male

DRUGS (1)
  1. NOVOSEVEN [Suspect]
     Indication: HAEMOPHILIA
     Dosage: 4.8 MG X 110 DOSES
     Route: 042

REACTIONS (1)
  - SEPSIS [None]
